FAERS Safety Report 8021091-5 (Version None)
Quarter: 2012Q1

REPORT INFORMATION
  Report Type: 
  Country: None (occurrence: None)
  Receive Date: 20120104
  Receipt Date: 20111227
  Transmission Date: 20120608
  Serious: Yes (Hospitalization)
  Sender: FDA-Public Use
  Company Number: US-BAYER-2011-105834

PATIENT
  Age: 17 Year
  Sex: Female
  Weight: 56.236 kg

DRUGS (6)
  1. ZOFRAN [Concomitant]
     Dosage: UNK UNK, PRN
  2. ZOSYN [Concomitant]
     Route: 042
  3. KETOROLAC TROMETHAMINE [Concomitant]
  4. PHENERGAN [Concomitant]
     Dosage: UNK UNK, PRN
     Route: 054
  5. YAZ [Suspect]
     Indication: CONTRACEPTION
     Dosage: UNK
     Route: 048
     Dates: start: 20090701, end: 20090901
  6. ACETAMINOPHEN [Concomitant]

REACTIONS (10)
  - CHOLECYSTITIS CHRONIC [None]
  - DYSPEPSIA [None]
  - FEAR [None]
  - BILIARY DYSKINESIA [None]
  - EMOTIONAL DISTRESS [None]
  - PAIN [None]
  - GALLBLADDER DISORDER [None]
  - PSYCHOLOGICAL TRAUMA [None]
  - ANXIETY [None]
  - ABDOMINAL PAIN UPPER [None]
